FAERS Safety Report 17759643 (Version 2)
Quarter: 2020Q2

REPORT INFORMATION
  Report Type: Report from Study
  Country: GR (occurrence: GR)
  Receive Date: 20200508
  Receipt Date: 20200529
  Transmission Date: 20200714
  Serious: Yes (Hospitalization)
  Sender: FDA-Public Use
  Company Number: GR-ELI_LILLY_AND_COMPANY-GR202005000088

PATIENT
  Age: 81 Year
  Sex: Male

DRUGS (5)
  1. CONCOR [Concomitant]
     Active Substance: BISOPROLOL FUMARATE
     Indication: HYPERTENSION
     Dosage: 0.5 DOSAGE FORM (1/2 TABLET), DAILY
  2. VITAMIN D NOS [Concomitant]
     Active Substance: VITAMIN D NOS
     Indication: VITAMIN D DEFICIENCY
     Dosage: 1 DOSAGE FORM, QOD
  3. ZYLAPOUR [Concomitant]
     Indication: BLOOD URIC ACID INCREASED
     Dosage: 1 DOSAGE FORM, DAILY
  4. TERIPARATIDE [Suspect]
     Active Substance: TERIPARATIDE
     Indication: OSTEOPOROSIS
     Dosage: 20 UG, DAILY
     Route: 058
     Dates: start: 20200411, end: 20200501
  5. TRIATEC [RAMIPRIL] [Concomitant]
     Active Substance: RAMIPRIL
     Indication: CARDIAC DISORDER
     Dosage: 1 DOSAGE FORM, DAILY

REACTIONS (4)
  - Anaemia [Unknown]
  - Renal failure [Unknown]
  - Plasma cell myeloma [Unknown]
  - Major depression [Unknown]

NARRATIVE: CASE EVENT DATE: 20200426
